FAERS Safety Report 4699293-5 (Version None)
Quarter: 2005Q2

REPORT INFORMATION
  Report Type: 
  Country: None (occurrence: None)
  Receive Date: 20050622
  Receipt Date: 20050611
  Transmission Date: 20051028
  Serious: Yes (Other)
  Sender: FDA-Public Use
  Company Number: 2005088573

PATIENT
  Sex: Male

DRUGS (1)
  1. MEDROL [Suspect]
     Indication: ILL-DEFINED DISORDER
     Dosage: ORAL

REACTIONS (1)
  - SHOCK [None]
